FAERS Safety Report 8156984-1 (Version None)
Quarter: 2012Q1

REPORT INFORMATION
  Report Type: 
  Country: None (occurrence: None)
  Receive Date: 20120222
  Receipt Date: 20120215
  Transmission Date: 20120608
  Serious: Yes (Other)
  Sender: FDA-Public Use
  Company Number: US-JNJFOC-20120201443

PATIENT
  Sex: Male
  Weight: 118.39 kg

DRUGS (13)
  1. GLUCOVANCE [Concomitant]
     Indication: DIABETES MELLITUS
     Dosage: 2.5-500MG TWICE DAILY
     Route: 048
     Dates: start: 19990101
  2. METHOTREXATE [Concomitant]
     Indication: RHEUMATOID ARTHRITIS
     Dosage: 2.5 MG/TABLET 7 TABLETS PER WEEK
     Route: 048
  3. UNIVASC [Concomitant]
     Indication: HYPERTENSION
     Dosage: 7.5 MG DAILY
     Route: 048
  4. PERCOCET [Suspect]
     Indication: PAIN
     Route: 048
     Dates: start: 20070101, end: 20100101
  5. FENTANYL-100 [Suspect]
     Dosage: 75 UG/HR PATCH ONCE IN 72 HOURS
     Route: 065
     Dates: start: 20100101, end: 20110101
  6. ZOLOFT [Concomitant]
     Route: 048
     Dates: start: 20070101, end: 20110101
  7. CRESTOR [Concomitant]
     Indication: BLOOD CHOLESTEROL
     Dosage: 10 MG DAILY
     Route: 048
     Dates: start: 20110101
  8. TRAMADOL HCL [Suspect]
     Indication: PAIN
  9. FENTANYL-100 [Suspect]
     Indication: PAIN
     Dosage: 75 UG/HR PATCH ONCE IN 48 HOURS
     Route: 065
     Dates: start: 20110101
  10. ATARAX [Concomitant]
     Indication: SLEEP DISORDER
     Dosage: 25 MG AS NECESSARY
     Route: 048
  11. INSULIN [Concomitant]
     Indication: DIABETES MELLITUS
     Dosage: 60 IU TWICE DAILY
     Route: 058
     Dates: start: 19990101
  12. FOLIC ACID [Concomitant]
     Indication: RHEUMATOID ARTHRITIS
     Dosage: 1MG DAILY
     Route: 048
  13. FLEXERIL [Concomitant]
     Indication: PAIN
     Dosage: 10 MG AS NEEDED
     Route: 065
     Dates: start: 20070101

REACTIONS (2)
  - FIBROMYALGIA [None]
  - PAIN [None]
